FAERS Safety Report 6052868-3 (Version None)
Quarter: 2009Q1

REPORT INFORMATION
  Report Type: 
  Country: None (occurrence: None)
  Receive Date: 20090122
  Receipt Date: 20090109
  Transmission Date: 20090719
  Serious: No
  Sender: FDA-Public Use
  Company Number: US025283

PATIENT
  Sex: Female

DRUGS (2)
  1. FENTORA [Suspect]
     Indication: ABDOMINAL PAIN
     Dosage: 600 UG BUCCAL
     Route: 002
  2. HYDROCODONE [Concomitant]

REACTIONS (1)
  - DRUG PRESCRIBING ERROR [None]
